FAERS Safety Report 6053279-7 (Version None)
Quarter: 2009Q1

REPORT INFORMATION
  Report Type: 
  Country: None (occurrence: None)
  Receive Date: 20090127
  Receipt Date: 20090121
  Transmission Date: 20090719
  Serious: Yes (Hospitalization)
  Sender: FDA-Public Use
  Company Number: A0715576A

PATIENT
  Age: 55 Year
  Sex: Male
  Weight: 127.3 kg

DRUGS (13)
  1. AVANDAMET [Suspect]
     Route: 048
     Dates: start: 20040801, end: 20050201
  2. AVANDIA [Suspect]
     Dosage: 8MG PER DAY
     Route: 048
     Dates: start: 20050201, end: 20070601
  3. VALTREX [Concomitant]
  4. NAPROXEN [Concomitant]
  5. GLARGINE [Concomitant]
     Dates: start: 20060323, end: 20060330
  6. REGULAR INSULIN [Concomitant]
     Dates: start: 20060323, end: 20060330
  7. LIPITOR [Concomitant]
     Dates: start: 20070501
  8. METFORMIN HCL [Concomitant]
     Dosage: 1000MG TWICE PER DAY
     Dates: start: 20030101, end: 20040101
  9. VIAGRA [Concomitant]
  10. TAMOXIFEN CITRATE [Concomitant]
     Dates: start: 20060101
  11. VALTREX [Concomitant]
  12. MINOCYCLINE HCL [Concomitant]
  13. TOPROL-XL [Concomitant]

REACTIONS (3)
  - CORONARY ARTERY DISEASE [None]
  - MYOCARDIAL INFARCTION [None]
  - MYOCARDIAL ISCHAEMIA [None]
